FAERS Safety Report 4709799-8 (Version None)
Quarter: 2005Q3

REPORT INFORMATION
  Report Type: 
  Country: None (occurrence: None)
  Receive Date: 20050708
  Receipt Date: 20050628
  Transmission Date: 20060218
  Serious: Yes (Other)
  Sender: FDA-Public Use
  Company Number: US-AMGEN-US140662

PATIENT
  Sex: Female
  Weight: 59 kg

DRUGS (5)
  1. ENBREL [Suspect]
     Indication: RHEUMATOID ARTHRITIS
     Route: 058
     Dates: start: 20020101, end: 20050614
  2. MEDROL [Concomitant]
     Route: 048
     Dates: start: 19900101
  3. SOMA [Concomitant]
     Dates: start: 19930101
  4. METHOTREXATE [Concomitant]
     Route: 048
     Dates: start: 20000101
  5. DICLOFENAC SODIUM [Concomitant]
     Dates: start: 20050101

REACTIONS (3)
  - FATIGUE [None]
  - PARAESTHESIA [None]
  - VISUAL DISTURBANCE [None]
